FAERS Safety Report 14489678 (Version 1)
Quarter: 2018Q1

REPORT INFORMATION
  Report Type: Report from Study
  Country: US (occurrence: US)
  Receive Date: 20180205
  Receipt Date: 20180205
  Transmission Date: 20180509
  Serious: No
  Sender: FDA-Public Use
  Company Number: US-AMGEN-USASP2013041363

PATIENT
  Age: 59 Year
  Sex: Female
  Weight: 83.45 kg

DRUGS (25)
  1. AVASTIN [Suspect]
     Active Substance: BEVACIZUMAB
     Dosage: 1270 MG, UNK
     Route: 042
     Dates: start: 20140124
  2. TAXOL [Concomitant]
     Active Substance: PACLITAXEL
     Indication: NON-SMALL CELL LUNG CANCER
     Dosage: UNK UNK, Q3WK
     Route: 042
     Dates: start: 20130304
  3. TAXOL [Concomitant]
     Active Substance: PACLITAXEL
     Dosage: UNK UNK, Q3WK
     Route: 042
     Dates: start: 20130311
  4. ALIMTA [Concomitant]
     Active Substance: PEMETREXED DISODIUM
     Dosage: 975 MG, QD (1 IN 1 D)
     Route: 042
  5. ZOMETA [Concomitant]
     Active Substance: ZOLEDRONIC ACID
     Dosage: 4 MG, QD (1 IN 1 D)
  6. AVASTIN [Suspect]
     Active Substance: BEVACIZUMAB
     Indication: NON-SMALL CELL LUNG CANCER
     Dosage: UNK UNK, Q3WK
     Route: 042
     Dates: start: 20130304
  7. CARBOPLATIN. [Concomitant]
     Active Substance: CARBOPLATIN
     Dosage: UNK
     Route: 042
     Dates: start: 20130311
  8. AVASTIN [Suspect]
     Active Substance: BEVACIZUMAB
     Dosage: 1150 MG, UNK
     Route: 042
     Dates: start: 20140217
  9. AVASTIN [Suspect]
     Active Substance: BEVACIZUMAB
     Dosage: 1150 MG, UNK
     Route: 042
     Dates: start: 20140421
  10. CARBOPLATIN. [Concomitant]
     Active Substance: CARBOPLATIN
     Indication: NON-SMALL CELL LUNG CANCER
     Dosage: UNK UNK, Q3WK
     Route: 042
     Dates: start: 20130304
  11. OXYCODONE [Concomitant]
     Active Substance: OXYCODONE
     Indication: PAIN
     Dosage: UNK UNK, AS NEEDED
     Route: 048
     Dates: start: 20130305
  12. NEULASTA [Suspect]
     Active Substance: PEGFILGRASTIM
     Indication: NON-SMALL CELL LUNG CANCER
     Dosage: UNK UNK, Q3WK
     Route: 065
     Dates: start: 20130305
  13. AVASTIN [Suspect]
     Active Substance: BEVACIZUMAB
     Dosage: UNK, Q3WK
     Route: 042
     Dates: start: 20130311
  14. AVASTIN [Suspect]
     Active Substance: BEVACIZUMAB
     Dosage: 1150 MG, UNK
     Route: 042
     Dates: start: 20140310
  15. HEPARIN [Concomitant]
     Active Substance: HEPARIN SODIUM
     Dosage: 500 UNITS (100 UNIT/ML), UNK
     Dates: start: 20140804
  16. DECADRON [Concomitant]
     Active Substance: DEXAMETHASONE
     Dosage: 12 MG, QD (1 IN 1 D)
     Route: 042
  17. CYANOCOBALAMIN. [Concomitant]
     Active Substance: CYANOCOBALAMIN
     Dosage: 1000 MUG, UNK
  18. AVASTIN [Suspect]
     Active Substance: BEVACIZUMAB
     Dosage: 1150 MG, UNK
     Route: 042
     Dates: start: 20140331
  19. AVASTIN [Suspect]
     Active Substance: BEVACIZUMAB
     Dosage: 1164 MG, UNK
     Route: 042
     Dates: start: 20140512
  20. AVASTIN [Suspect]
     Active Substance: BEVACIZUMAB
     Dosage: 1164 MG, UNK
     Route: 042
     Dates: start: 20140623
  21. CLARITIN [Concomitant]
     Active Substance: LORATADINE
     Indication: PAIN
     Dosage: UNK UNK, Q3WK
     Dates: start: 20130305
  22. DECADRON [Concomitant]
     Active Substance: DEXAMETHASONE
     Dosage: 8 MG, UNK
     Route: 042
     Dates: start: 20140804
  23. ALIMTA [Concomitant]
     Active Substance: PEMETREXED DISODIUM
     Dosage: 925 MG, QD (ONCE)
     Route: 042
     Dates: start: 20140804
  24. AVASTIN [Suspect]
     Active Substance: BEVACIZUMAB
     Dosage: 1164 MG, UNK
     Route: 042
     Dates: start: 20140714
  25. AVASTIN [Suspect]
     Active Substance: BEVACIZUMAB
     Dosage: 15 MG/KG (1164 MG), UNK
     Route: 042
     Dates: start: 20140804

REACTIONS (8)
  - Fatigue [Not Recovered/Not Resolved]
  - Stomatitis [Unknown]
  - Rhinorrhoea [Not Recovered/Not Resolved]
  - Dysgeusia [Not Recovered/Not Resolved]
  - Arthralgia [Not Recovered/Not Resolved]
  - Injection site pain [Not Recovered/Not Resolved]
  - Dysphonia [Not Recovered/Not Resolved]
  - Alopecia [Unknown]

NARRATIVE: CASE EVENT DATE: 20130304
